FAERS Safety Report 18441596 (Version 3)
Quarter: 2021Q3

REPORT INFORMATION
  Report Type: Spontaneous
  Country: US (occurrence: US)
  Receive Date: 20201029
  Receipt Date: 20210930
  Transmission Date: 20211014
  Serious: No
  Sender: FDA-Public Use
  Company Number: US-ASTRAZENECA-2020SF30782

PATIENT
  Age: 26128 Day
  Sex: Female
  Weight: 81 kg

DRUGS (13)
  1. FASENRA [Suspect]
     Active Substance: BENRALIZUMAB
     Indication: ASTHMA
     Route: 058
     Dates: start: 20200922
  2. WIXELA INHUB [Concomitant]
     Active Substance: FLUTICASONE PROPIONATE\SALMETEROL XINAFOATE
  3. ADVAIR HFA [Concomitant]
     Active Substance: FLUTICASONE PROPIONATE\SALMETEROL XINAFOATE
  4. ASTELIN SPRAY [Concomitant]
  5. AZELASTINE. [Concomitant]
     Active Substance: AZELASTINE HYDROCHLORIDE
  6. ALBUTEROL SUL [Concomitant]
     Dosage: 1.25 MG/3 ML 3 TIMES PER DAY
  7. ZAFIRLUKAST. [Concomitant]
     Active Substance: ZAFIRLUKAST
  8. FLU INJECTION [Concomitant]
     Dates: start: 20200929
  9. PROAIR HFA [Concomitant]
     Active Substance: ALBUTEROL SULFATE
  10. ZURTEC [Concomitant]
  11. ACCOLATE [Concomitant]
     Active Substance: ZAFIRLUKAST
  12. FASENRA [Suspect]
     Active Substance: BENRALIZUMAB
     Indication: CHRONIC OBSTRUCTIVE PULMONARY DISEASE
     Route: 058
     Dates: start: 20200922
  13. BONIVA [Concomitant]
     Active Substance: IBANDRONATE SODIUM

REACTIONS (5)
  - Oropharyngeal pain [Recovered/Resolved]
  - SARS-CoV-2 test negative [Unknown]
  - Exposure to SARS-CoV-2 [Unknown]
  - Dysphonia [Not Recovered/Not Resolved]
  - Cough [Unknown]

NARRATIVE: CASE EVENT DATE: 20201002
